FAERS Safety Report 7549954-5 (Version None)
Quarter: 2011Q2

REPORT INFORMATION
  Report Type: 
  Country: None (occurrence: None)
  Receive Date: 20110615
  Receipt Date: 20110608
  Transmission Date: 20111010
  Serious: Yes (Hospitalization, Other)
  Sender: FDA-Public Use
  Company Number: US-ABBOTT-11P-163-0731199-00

PATIENT
  Sex: Male
  Weight: 63.56 kg

DRUGS (4)
  1. HUMIRA [Suspect]
     Indication: ANKYLOSING SPONDYLITIS
  2. FOSAMAX [Concomitant]
     Indication: OSTEOARTHRITIS
  3. HUMIRA [Suspect]
     Indication: RHEUMATOID ARTHRITIS
     Dates: start: 20070101, end: 20101001
  4. UNKNOWN PAIN MEDICATION [Concomitant]
     Indication: PAIN

REACTIONS (2)
  - KIDNEY INFECTION [None]
  - NEPHROLITHIASIS [None]
